FAERS Safety Report 5200985-X (Version None)
Quarter: 2007Q1

REPORT INFORMATION
  Report Type: 
  Country: None (occurrence: None)
  Receive Date: 20070108
  Receipt Date: 20061227
  Transmission Date: 20070707
  Serious: Yes (Life-Threatening, Hospitalization)
  Sender: FDA-Public Use
  Company Number: FR-BAXTER-2006BH015301

PATIENT
  Age: 3 Month
  Sex: Female
  Weight: 2 kg

DRUGS (13)
  1. SUPRANE [Suspect]
     Indication: ANAESTHESIA
     Dosage: DOSE UNIT:UNKNOWN
     Route: 055
     Dates: start: 20061109, end: 20061109
  2. SEVOFLURANE [Suspect]
     Indication: ANAESTHESIA
     Dosage: DOSE UNIT:UNKNOWN
     Route: 055
     Dates: start: 20061124, end: 20061124
  3. SEVOFLURANE [Suspect]
     Dosage: DOSE UNIT:UNKNOWN
     Route: 055
     Dates: start: 20061128, end: 20061128
  4. DIPRIVAN [Concomitant]
     Route: 042
  5. SUFENTA [Concomitant]
     Indication: GENERAL ANAESTHESIA
     Route: 042
     Dates: start: 20061128
  6. VOLUVEN [Concomitant]
     Route: 042
     Dates: start: 20061128, end: 20061128
  7. RAPIFEN [Concomitant]
     Indication: ANAESTHESIA
     Dates: start: 20061109
  8. PROPOFOL [Concomitant]
     Indication: GENERAL ANAESTHESIA
     Dates: start: 20061128
  9. MORPHINE [Concomitant]
     Indication: SPINAL ANAESTHESIA
     Dates: start: 20061128
  10. TIBERAL [Concomitant]
  11. CLAFORAN [Concomitant]
  12. SANDOSTATIN [Concomitant]
  13. PERFALGAN [Concomitant]

REACTIONS (10)
  - ALANINE AMINOTRANSFERASE INCREASED [None]
  - BLOOD CREATINE PHOSPHOKINASE INCREASED [None]
  - COAGULATION FACTOR DECREASED [None]
  - CYTOLYTIC HEPATITIS [None]
  - DISSEMINATED INTRAVASCULAR COAGULATION [None]
  - HAEMATEMESIS [None]
  - HYPERTENSION [None]
  - METABOLIC ACIDOSIS [None]
  - PYREXIA [None]
  - RHABDOMYOLYSIS [None]
